FAERS Safety Report 21577381 (Version 2)
Quarter: 2022Q4

REPORT INFORMATION
  Report Type: Spontaneous
  Country: CA (occurrence: CA)
  Receive Date: 20221110
  Receipt Date: 20221205
  Transmission Date: 20230112
  Serious: Yes (Other)
  Sender: FDA-Public Use
  Company Number: CA-GLAXOSMITHKLINE-CA2022AMR142015

PATIENT

DRUGS (5)
  1. BENLYSTA [Suspect]
     Active Substance: BELIMUMAB
     Indication: Systemic lupus erythematosus
     Dosage: 980 MG
     Dates: start: 20220310
  2. BENLYSTA [Suspect]
     Active Substance: BELIMUMAB
     Dosage: 980 MG
  3. BENLYSTA [Suspect]
     Active Substance: BELIMUMAB
     Dosage: 10 MG/KG, Z
  4. BENLYSTA [Suspect]
     Active Substance: BELIMUMAB
     Dosage: 120 MG(X5)
  5. BENLYSTA [Suspect]
     Active Substance: BELIMUMAB
     Dosage: 400 MG (X1)

REACTIONS (11)
  - Systemic lupus erythematosus [Recovered/Resolved]
  - Scratch [Recovered/Resolved]
  - Pruritus [Recovered/Resolved]
  - Dehydration [Recovering/Resolving]
  - Tremor [Recovering/Resolving]
  - Emotional disorder [Recovering/Resolving]
  - Pain [Unknown]
  - Fatigue [Unknown]
  - Mobility decreased [Unknown]
  - Condition aggravated [Unknown]
  - Aphasia [Unknown]

NARRATIVE: CASE EVENT DATE: 20220924
